FAERS Safety Report 18645977 (Version 1)
Quarter: 2020Q4

REPORT INFORMATION
  Report Type: Spontaneous
  Country: DE (occurrence: DE)
  Receive Date: 20201221
  Receipt Date: 20201221
  Transmission Date: 20210114
  Serious: Yes (Hospitalization)
  Sender: FDA-Public Use
  Company Number: DE-JNJFOC-20201225712

PATIENT
  Age: 87 Year
  Sex: Female

DRUGS (17)
  1. DUROGESIC SMAT [Suspect]
     Active Substance: FENTANYL
     Indication: PRODUCT USED FOR UNKNOWN INDICATION
     Dosage: 0.025 UG/H, WECHSEL ALLE 3 TAGE, PFLASTER TRANSDERMAL
     Route: 065
  2. LACTULOSE. [Concomitant]
     Active Substance: LACTULOSE
     Dosage: 1-0-1-0
  3. SPIRONOLACTONE. [Concomitant]
     Active Substance: SPIRONOLACTONE
     Dosage: 1-0-0-0
  4. LAXOBERAL [Concomitant]
     Active Substance: SODIUM PICOSULFATE
  5. MACROGOL [Concomitant]
     Active Substance: POLYETHYLENE GLYCOLS
     Dosage: 1-0-0-0
  6. ALLOPURINOL. [Concomitant]
     Active Substance: ALLOPURINOL
     Dosage: 0.5-0-0-0,
  7. VIANI [Concomitant]
     Active Substance: FLUTICASONE PROPIONATE\SALMETEROL XINAFOATE
     Dosage: 250|50 G, 1-0-1-0
  8. METAMIZOLE [Concomitant]
     Active Substance: METAMIZOLE
     Dosage: 30-30-30-30, TROPFEN
  9. FENOTEROL;IPRATROPIUM BROMIDE [Concomitant]
     Dosage: 0.5|0.25 MG/ML, 20-20-20-0
     Route: 055
  10. CITALOPRAM [Suspect]
     Active Substance: CITALOPRAM HYDROBROMIDE
     Indication: PRODUCT USED FOR UNKNOWN INDICATION
     Dosage: 0.5-0-0-0
     Route: 065
  11. MIRABEGRON [Suspect]
     Active Substance: MIRABEGRON
     Indication: PRODUCT USED FOR UNKNOWN INDICATION
     Route: 065
  12. TORASEMID [Concomitant]
     Active Substance: TORSEMIDE
     Dosage: 1-0-0-0
  13. APIXABAN [Concomitant]
     Active Substance: APIXABAN
     Dosage: 1-0-1-0
  14. CARBAMAZEPINE. [Suspect]
     Active Substance: CARBAMAZEPINE
     Indication: PRODUCT USED FOR UNKNOWN INDICATION
     Dosage: 1-0-1-0
     Route: 065
  15. PANTOPRAZOLE SODIUM SESQUIHYDRATE [Concomitant]
     Active Substance: PANTOPRAZOLE SODIUM
     Dosage: 1-0-0-0
  16. ALENDRONSAEURE [Concomitant]
     Active Substance: ALENDRONATE SODIUM
  17. CALCIMED D3 [Concomitant]
     Active Substance: CALCIUM CARBONATE\CHOLECALCIFEROL
     Dosage: 500|1000 MG/IIE, 1-0-0-0

REACTIONS (6)
  - Nausea [Unknown]
  - Arthralgia [Unknown]
  - Fracture [Unknown]
  - Product prescribing error [Unknown]
  - Product administration error [Unknown]
  - Fall [Unknown]
